FAERS Safety Report 13648539 (Version 1)
Quarter: 2017Q2

REPORT INFORMATION
  Report Type: Spontaneous
  Country: IT (occurrence: IT)
  Receive Date: 20170613
  Receipt Date: 20170613
  Transmission Date: 20170830
  Serious: Yes (Other)
  Sender: FDA-Public Use
  Company Number: IT-EDENBRIDGE PHARMACEUTICALS, LLC-IT-2017EDE000060

PATIENT
  Age: 65 Year
  Sex: Male

DRUGS (1)
  1. PREDNISOLONE SODIUM PHOSPHATE. [Suspect]
     Active Substance: PREDNISOLONE SODIUM PHOSPHATE
     Indication: OCULAR MYASTHENIA
     Dosage: UNK
     Dates: start: 201411

REACTIONS (3)
  - Chorioretinopathy [Unknown]
  - Retinal detachment [Recovered/Resolved]
  - Chorioretinal folds [Not Recovered/Not Resolved]
